FAERS Safety Report 6368042-7 (Version None)
Quarter: 2009Q3

REPORT INFORMATION
  Report Type: 
  Country: None (occurrence: None)
  Receive Date: 20090922
  Receipt Date: 20090915
  Transmission Date: 20100115
  Serious: Yes (Other)
  Sender: FDA-Public Use
  Company Number: US-BAYER-200929658NA

PATIENT
  Age: 33 Year
  Sex: Female

DRUGS (1)
  1. MIRENA [Suspect]
     Indication: CONTRACEPTION
     Route: 015
     Dates: start: 20081107, end: 20090903

REACTIONS (4)
  - BLIGHTED OVUM [None]
  - FEELING ABNORMAL [None]
  - IUD MIGRATION [None]
  - PREGNANCY TEST POSITIVE [None]
